FAERS Safety Report 7245546-6 (Version None)
Quarter: 2011Q1

REPORT INFORMATION
  Report Type: 
  Country: None (occurrence: None)
  Receive Date: 20110126
  Receipt Date: 20110121
  Transmission Date: 20110831
  Serious: Yes (Other)
  Sender: FDA-Public Use
  Company Number: US-PFIZER INC-2011015637

PATIENT
  Sex: Male
  Weight: 83.9 kg

DRUGS (1)
  1. CHANTIX [Suspect]
     Indication: SMOKING CESSATION THERAPY
     Dosage: UNK
     Route: 048
     Dates: start: 20090401

REACTIONS (9)
  - AGITATION [None]
  - ABNORMAL DREAMS [None]
  - IRRITABILITY [None]
  - SELF-MEDICATION [None]
  - AGGRESSION [None]
  - POST CONCUSSION SYNDROME [None]
  - HOMICIDE [None]
  - NIGHTMARE [None]
  - ANXIETY [None]
